FAERS Safety Report 8996249 (Version 2)
Quarter: 2013Q1

REPORT INFORMATION
  Report Type: Spontaneous
  Country: US (occurrence: US)
  Receive Date: 20130103
  Receipt Date: 20130131
  Transmission Date: 20140127
  Serious: Yes (Hospitalization)
  Sender: FDA-Public Use
  Company Number: US-GILEAD-2013-0067273

PATIENT
  Sex: Female

DRUGS (5)
  1. LETAIRIS [Suspect]
     Indication: PULMONARY HYPERTENSION
     Dosage: 10 MG, QD
     Route: 048
     Dates: start: 20120418
  2. LETAIRIS [Suspect]
     Indication: DRUG ABUSE
  3. TYVASO [Concomitant]
  4. LASIX                              /00032601/ [Suspect]
  5. METOLAZONE [Suspect]

REACTIONS (1)
  - Blood potassium abnormal [Unknown]
